FAERS Safety Report 5639721-1 (Version None)
Quarter: 2008Q1

REPORT INFORMATION
  Report Type: 
  Country: None (occurrence: None)
  Receive Date: 20080131
  Receipt Date: 20071124
  Transmission Date: 20080703
  Serious: Yes (Other)
  Sender: FDA-Public Use
  Company Number: 163-21880-07110349

PATIENT
  Age: 60 Year
  Sex: Male

DRUGS (4)
  1. REVLIMID [Suspect]
     Indication: 5Q-SYNDROME
     Dosage: SEE IMAGE
     Route: 048
     Dates: start: 20070626, end: 20070810
  2. REVLIMID [Suspect]
     Indication: 5Q-SYNDROME
     Dosage: SEE IMAGE
     Route: 048
     Dates: start: 20070801, end: 20070901
  3. REVLIMID [Suspect]
     Indication: 5Q-SYNDROME
     Dosage: SEE IMAGE
     Route: 048
     Dates: start: 20070901, end: 20070901
  4. REVLIMID [Suspect]
     Indication: 5Q-SYNDROME
     Dosage: SEE IMAGE
     Route: 048
     Dates: start: 20070901

REACTIONS (4)
  - BONE MARROW FAILURE [None]
  - HAEMOGLOBIN DECREASED [None]
  - NEUTROPENIA [None]
  - THROMBOCYTOPENIA [None]
